FAERS Safety Report 9304114 (Version 1)
Quarter: 2013Q2

REPORT INFORMATION
  Report Type: Spontaneous
  Country: BR (occurrence: BR)
  Receive Date: 20130522
  Receipt Date: 20130522
  Transmission Date: 20140414
  Serious: Yes (Hospitalization)
  Sender: FDA-Public Use
  Company Number: BR-PFIZER INC-2013156436

PATIENT
  Age: 31 Year
  Sex: Male
  Weight: 83 kg

DRUGS (2)
  1. LYRICA [Suspect]
     Indication: SCIATIC NERVE INJURY
     Dosage: 75 MG (ONE CAPSULE), 2X/DAY
     Route: 048
  2. LYRICA [Suspect]
     Indication: INTERVERTEBRAL DISC PROTRUSION

REACTIONS (1)
  - Intervertebral disc protrusion [Unknown]
